FAERS Safety Report 23517664 (Version 1)
Quarter: 2024Q1

REPORT INFORMATION
  Report Type: Report from Study
  Country: US (occurrence: US)
  Receive Date: 20240213
  Receipt Date: 20240213
  Transmission Date: 20240410
  Serious: Yes (Hospitalization)
  Sender: FDA-Public Use
  Company Number: US-INCYTE CORPORATION-2024IN001506

PATIENT

DRUGS (2)
  1. JAKAFI [Suspect]
     Active Substance: RUXOLITINIB
     Indication: Chronic graft versus host disease
     Dosage: 5 MILLIGRAM, BID
     Route: 065
  2. GLIPIZIDE [Suspect]
     Active Substance: GLIPIZIDE
     Indication: Blood glucose increased
     Dosage: UNK
     Route: 065

REACTIONS (2)
  - Blood glucose decreased [Not Recovered/Not Resolved]
  - Hot flush [Unknown]
